FAERS Safety Report 14606618 (Version 1)
Quarter: 2018Q1

REPORT INFORMATION
  Report Type: Spontaneous
  Country: US (occurrence: US)
  Receive Date: 20180307
  Receipt Date: 20180307
  Transmission Date: 20180509
  Serious: No
  Sender: FDA-Public Use
  Company Number: US-TEVA-769811ACC

PATIENT
  Sex: Female

DRUGS (6)
  1. GABAPENTIN. [Suspect]
     Active Substance: GABAPENTIN
     Indication: NEUROPATHY PERIPHERAL
     Dosage: 1200 MILLIGRAM DAILY;
     Route: 065
     Dates: start: 2015
  2. MYRBETRIQ [Interacting]
     Active Substance: MIRABEGRON
     Dosage: 50 MILLIGRAM DAILY;
     Route: 048
     Dates: start: 201704
  3. MICARDIS [Concomitant]
     Active Substance: TELMISARTAN
  4. TYLENOL [Interacting]
     Active Substance: ACETAMINOPHEN
     Indication: PAIN
     Route: 065
  5. ZOLOFT [Concomitant]
     Active Substance: SERTRALINE HYDROCHLORIDE
  6. BYSTOLIC [Concomitant]
     Active Substance: NEBIVOLOL HYDROCHLORIDE

REACTIONS (7)
  - Blood pressure increased [Recovered/Resolved]
  - Constipation [Recovered/Resolved]
  - Feeling abnormal [Unknown]
  - Depression [Recovered/Resolved]
  - Drug interaction [Unknown]
  - Neuralgia [Unknown]
  - Blood pressure diastolic decreased [Unknown]

NARRATIVE: CASE EVENT DATE: 201704
